FAERS Safety Report 5663423-9 (Version None)
Quarter: 2008Q1

REPORT INFORMATION
  Report Type: 
  Country: None (occurrence: None)
  Receive Date: 20080310
  Receipt Date: 20080229
  Transmission Date: 20080703
  Serious: Yes (Hospitalization)
  Sender: FDA-Public Use
  Company Number: 2008AL001252

PATIENT
  Age: 34 Year
  Sex: Female

DRUGS (3)
  1. FLUOXETINE [Suspect]
     Indication: MAJOR DEPRESSION
     Dosage: 20 MG;QD;PO
     Route: 048
  2. HALOPERIDOL [Concomitant]
  3. RISPERIDONE [Concomitant]

REACTIONS (2)
  - INFLUENZA LIKE ILLNESS [None]
  - TOXIC EPIDERMAL NECROLYSIS [None]
